FAERS Safety Report 11192353 (Version 2)
Quarter: 2015Q3

REPORT INFORMATION
  Report Type: Spontaneous
  Country: PT (occurrence: PT)
  Receive Date: 20150616
  Receipt Date: 20150921
  Transmission Date: 20151125
  Serious: Yes (Other)
  Sender: FDA-Public Use
  Company Number: PT-ACTAVIS-2015-11716

PATIENT
  Age: 47 Year
  Sex: Female
  Weight: 75 kg

DRUGS (5)
  1. HERCEPTIN [Concomitant]
     Active Substance: TRASTUZUMAB
     Indication: BREAST CANCER
     Dosage: 450 MG, UNK. ROCHE REGISTRATION, LTD.
     Route: 042
     Dates: start: 20150422, end: 20150422
  2. ONDANSETROM                        /00955301/ [Concomitant]
     Indication: ALLERGY PROPHYLAXIS
     Dosage: 8 MG, DAILY. AS PART OF PRE-MEDICATION REGIMEN
     Route: 042
     Dates: start: 20150422, end: 20150422
  3. DOCETAXEL ACTAVIS [Suspect]
     Active Substance: DOCETAXEL
     Indication: BREAST CANCER
     Dosage: 180 MG, 1/ THREE WEEKS
     Route: 042
     Dates: start: 20150422, end: 20150422
  4. DEXAMETASONA                       /00016001/ [Concomitant]
     Indication: ALLERGY PROPHYLAXIS
     Dosage: 20 MG, DAILY. AS PART OF PRE-MEDICATION REGIMEN
     Route: 042
     Dates: start: 20150422, end: 20150422
  5. PREDNISOLONA                       /00016201/ [Concomitant]
     Indication: ALLERGY PROPHYLAXIS
     Dosage: 20 MG, THREE DOSES EVERY TWO DAYS. AS PART OF PRE-MEDICATION REGIMEN
     Route: 048
     Dates: start: 20150421, end: 20150422

REACTIONS (4)
  - Skin lesion [Unknown]
  - Injection site discolouration [Unknown]
  - Injection site pruritus [Unknown]
  - Injection site vesicles [Unknown]

NARRATIVE: CASE EVENT DATE: 20150429
